FAERS Safety Report 4304723-4 (Version None)
Quarter: 2004Q1

REPORT INFORMATION
  Report Type: 
  Country: None (occurrence: None)
  Receive Date: 20040224
  Receipt Date: 20040216
  Transmission Date: 20041129
  Serious: No
  Sender: FDA-Public Use
  Company Number: 2004GB00045

PATIENT
  Sex: Male

DRUGS (1)
  1. ZOLADEX [Suspect]
     Indication: PROSTATE CANCER
     Dosage: 10.8 MG SQ
     Dates: start: 20030204

REACTIONS (2)
  - EYE DISORDER [None]
  - VISUAL ACUITY REDUCED [None]
